FAERS Safety Report 15335594 (Version 3)
Quarter: 2019Q2

REPORT INFORMATION
  Report Type: Spontaneous
  Country: US (occurrence: US)
  Receive Date: 20180830
  Receipt Date: 20190409
  Transmission Date: 20190711
  Serious: Yes (Death, Hospitalization, Other)
  Sender: FDA-Public Use
  Company Number: US-ASTRAZENECA-2018SF07282

PATIENT
  Age: 19027 Day
  Sex: Male
  Weight: 93.9 kg

DRUGS (64)
  1. LISINOPRIL. [Concomitant]
     Active Substance: LISINOPRIL
     Indication: BLOOD PRESSURE MEASUREMENT
     Dates: start: 200907, end: 201701
  2. MELOXICAM. [Concomitant]
     Active Substance: MELOXICAM
     Dates: start: 200901, end: 201604
  3. LOPRESSOR [Concomitant]
     Active Substance: METOPROLOL TARTRATE
     Dates: start: 20160106
  4. PLETAL [Concomitant]
     Active Substance: CILOSTAZOL
     Dates: start: 20160831
  5. ESCITALOPRAM [Concomitant]
     Active Substance: ESCITALOPRAM OXALATE
  6. CARVEDILOL. [Concomitant]
     Active Substance: CARVEDILOL
  7. NEXIUM [Suspect]
     Active Substance: ESOMEPRAZOLE MAGNESIUM
     Indication: GASTROOESOPHAGEAL REFLUX DISEASE
     Route: 048
     Dates: start: 198801, end: 20161207
  8. NEXIUM [Suspect]
     Active Substance: ESOMEPRAZOLE MAGNESIUM
     Indication: GASTROOESOPHAGEAL REFLUX DISEASE
     Dosage: GENERIC ESOMEPRAZOLE
     Route: 065
     Dates: start: 2017
  9. AZITHROMYCIN ANHYDROUS. [Concomitant]
     Active Substance: AZITHROMYCIN ANHYDROUS
     Dates: start: 201010, end: 201301
  10. WARFARIN [Concomitant]
     Active Substance: WARFARIN
  11. TUMS [Concomitant]
     Active Substance: CALCIUM CARBONATE
     Dates: start: 1990, end: 2000
  12. ALKA-SELTZER [Concomitant]
     Active Substance: ANHYDROUS CITRIC ACID\ASPIRIN\SODIUM BICARBONATE
     Dates: start: 1990, end: 2000
  13. VIAGRA [Concomitant]
     Active Substance: SILDENAFIL CITRATE
     Dates: start: 20080814
  14. HYDROCOD/ACE [Concomitant]
     Dates: start: 20090722
  15. DICLOFENAC SODIUM. [Concomitant]
     Active Substance: DICLOFENAC SODIUM
     Dates: start: 20091127
  16. LEVOFLOXACIN. [Concomitant]
     Active Substance: LEVOFLOXACIN
     Dates: start: 20150128
  17. CETRIZINE [Concomitant]
     Active Substance: CETIRIZINE HYDROCHLORIDE
     Dates: start: 20170608
  18. KETOCONAZOLE. [Concomitant]
     Active Substance: KETOCONAZOLE
  19. NEXIUM [Suspect]
     Active Substance: ESOMEPRAZOLE MAGNESIUM
     Indication: GASTROOESOPHAGEAL REFLUX DISEASE
     Route: 048
     Dates: start: 20080814
  20. PRILOSEC [Suspect]
     Active Substance: OMEPRAZOLE MAGNESIUM
     Indication: GASTROOESOPHAGEAL REFLUX DISEASE
     Dosage: GENERIC OMEPRAZOLE
     Route: 065
     Dates: start: 2011, end: 2012
  21. PROTONIX [Suspect]
     Active Substance: PANTOPRAZOLE SODIUM
     Indication: GASTROOESOPHAGEAL REFLUX DISEASE
     Route: 065
     Dates: start: 20160106
  22. MILK OF MAGNESIA [Concomitant]
     Active Substance: MAGNESIUM HYDROXIDE
     Dates: start: 1990, end: 2000
  23. LIPITOR [Concomitant]
     Active Substance: ATORVASTATIN CALCIUM
     Dates: start: 20160106
  24. QVAR [Concomitant]
     Active Substance: BECLOMETHASONE DIPROPIONATE
     Dosage: 40 MCG
     Dates: start: 20100630
  25. FENOFIBRATE. [Concomitant]
     Active Substance: FENOFIBRATE
     Dosage: 160 MG
     Dates: start: 20120406
  26. FLONASE [Concomitant]
     Active Substance: FLUTICASONE PROPIONATE
     Dosage: 2 SPRAY NS DAILY
     Dates: start: 20170608
  27. SENSIPAR [Concomitant]
     Active Substance: CINACALCET HYDROCHLORIDE
  28. NEXIUM [Suspect]
     Active Substance: ESOMEPRAZOLE MAGNESIUM
     Indication: GASTROOESOPHAGEAL REFLUX DISEASE
     Route: 048
     Dates: start: 2007, end: 2017
  29. NEXIUM [Suspect]
     Active Substance: ESOMEPRAZOLE MAGNESIUM
     Indication: GASTROOESOPHAGEAL REFLUX DISEASE
     Route: 048
     Dates: start: 20080801, end: 20081201
  30. PROTONIX [Suspect]
     Active Substance: PANTOPRAZOLE SODIUM
     Indication: GASTROOESOPHAGEAL REFLUX DISEASE
     Route: 065
     Dates: start: 199801, end: 20161207
  31. NAPROXEN. [Concomitant]
     Active Substance: NAPROXEN
     Dates: start: 200809, end: 200906
  32. ENALAPRIL [Concomitant]
     Active Substance: ENALAPRIL
     Indication: BLOOD PRESSURE MEASUREMENT
     Dates: start: 200901, end: 200907
  33. ROLAIDS [Concomitant]
     Active Substance: CALCIUM CARBONATE\MAGNESIUM HYDROXIDE
     Dates: start: 1990, end: 2000
  34. A-HYDROCORT [Concomitant]
     Active Substance: HYDROCORTISONE SODIUM SUCCINATE
     Dosage: 2.5 %
     Dates: start: 20080810
  35. LODRANE D [Concomitant]
     Active Substance: BROMPHENIRAMINE MALEATE\PSEUDOEPHEDRINE HYDROCHLORIDE
     Dates: start: 20090303
  36. BUPROPION HYDROCHLORIDE. [Concomitant]
     Active Substance: BUPROPION HYDROCHLORIDE
     Dates: start: 20090414
  37. CHLORTHALIDONE. [Concomitant]
     Active Substance: CHLORTHALIDONE
     Dates: start: 20141118
  38. ALPRAZOLAM. [Concomitant]
     Active Substance: ALPRAZOLAM
     Dosage: 0.25G
  39. ADVAIR HFA [Concomitant]
     Active Substance: FLUTICASONE PROPIONATE\SALMETEROL XINAFOATE
  40. TIZANIDINE. [Concomitant]
     Active Substance: TIZANIDINE
  41. ZONISAMIDE. [Concomitant]
     Active Substance: ZONISAMIDE
  42. PRILOSEC [Suspect]
     Active Substance: OMEPRAZOLE MAGNESIUM
     Indication: GASTROOESOPHAGEAL REFLUX DISEASE
     Dosage: GENERIC
     Route: 065
     Dates: start: 20100201, end: 20140601
  43. CALCIUM CARBONATE. [Concomitant]
     Active Substance: CALCIUM CARBONATE
     Dates: start: 1990, end: 2000
  44. ZANTAC 150 (OTC) [Concomitant]
     Dates: start: 1990, end: 2000
  45. GABAPENTIN. [Concomitant]
     Active Substance: GABAPENTIN
     Dates: start: 20160831
  46. PAROXETINE. [Concomitant]
     Active Substance: PAROXETINE
     Dosage: 20 MG
     Dates: start: 20110125
  47. RENVELA [Concomitant]
     Active Substance: SEVELAMER CARBONATE
  48. OMEGA 3 [Concomitant]
     Active Substance: OMEGA-3 FATTY ACIDS
     Dates: start: 20160106
  49. CARVEDILOL. [Concomitant]
     Active Substance: CARVEDILOL
     Dates: start: 20170608
  50. PRILOSEC [Suspect]
     Active Substance: OMEPRAZOLE MAGNESIUM
     Indication: GASTROOESOPHAGEAL REFLUX DISEASE
     Route: 048
     Dates: start: 199801, end: 20161207
  51. PROTONIX [Suspect]
     Active Substance: PANTOPRAZOLE SODIUM
     Indication: GASTROOESOPHAGEAL REFLUX DISEASE
     Dosage: GENERIC
     Route: 065
     Dates: start: 20141124, end: 20161201
  52. ASPIRIN. [Concomitant]
     Active Substance: ASPIRIN
     Dates: start: 20170608
  53. FAMOTIDINE. [Concomitant]
     Active Substance: FAMOTIDINE
     Dates: start: 1990, end: 2000
  54. PEPTO-BISMOL [Concomitant]
     Active Substance: BISMUTH SUBSALICYLATE
     Dates: start: 1990, end: 2000
  55. IBUPROFEN. [Concomitant]
     Active Substance: IBUPROFEN
     Dates: start: 20091123
  56. DOXYCYCLINE. [Concomitant]
     Active Substance: DOXYCYCLINE
     Dosage: 100 MG
     Dates: start: 20100512
  57. IMDUR [Concomitant]
     Active Substance: ISOSORBIDE MONONITRATE
     Dates: start: 20170608
  58. OXYCODONE [Concomitant]
     Active Substance: OXYCODONE
  59. VENTOLIN [Concomitant]
     Active Substance: ALBUTEROL SULFATE
  60. MAGNESIUM HYDROXIDE. [Concomitant]
     Active Substance: MAGNESIUM HYDROXIDE
  61. VENTOLIN HFA [Concomitant]
     Active Substance: ALBUTEROL SULFATE
     Dates: start: 20160831
  62. EPIPEN [Concomitant]
     Active Substance: EPINEPHRINE
     Dates: start: 20081114
  63. LISINOPRIL-HCTZ [Concomitant]
     Active Substance: HYDROCHLOROTHIAZIDE\LISINOPRIL
     Dates: start: 20110125
  64. TIZANIDINE. [Concomitant]
     Active Substance: TIZANIDINE
     Dates: start: 20170608

REACTIONS (5)
  - Death [Fatal]
  - Acute kidney injury [Not Recovered/Not Resolved]
  - Chronic kidney disease [Not Recovered/Not Resolved]
  - Hyperkalaemia [Not Recovered/Not Resolved]
  - Renal failure [Not Recovered/Not Resolved]

NARRATIVE: CASE EVENT DATE: 20160830
